FAERS Safety Report 5338971-1 (Version None)
Quarter: 2007Q2

REPORT INFORMATION
  Report Type: 
  Country: None (occurrence: None)
  Receive Date: 20070404
  Receipt Date: 20060920
  Transmission Date: 20071010
  Serious: Yes (Other)
  Sender: FDA-Public Use
  Company Number: HQWYE127425SEP06

PATIENT
  Age: 50 Year
  Sex: Female
  Weight: 104.42 kg

DRUGS (5)
  1. ALAVERT [Suspect]
     Indication: SINUS CONGESTION
     Dosage: 1 TABLET X 1, ORAL
     Route: 048
     Dates: start: 20060918, end: 20060918
  2. ALAVERT [Suspect]
     Indication: SINUS HEADACHE
     Dosage: 1 TABLET X 1, ORAL
     Route: 048
     Dates: start: 20060918, end: 20060918
  3. ALAVERT [Suspect]
     Indication: WHEEZING
     Dosage: 1 TABLET X 1, ORAL
     Route: 048
     Dates: start: 20060918, end: 20060918
  4. HDYROCHLOROTHIAZIDE (HYDROCHLOROTHIAZIDE) [Concomitant]
  5. SYNTHROID [Concomitant]

REACTIONS (1)
  - SOMNOLENCE [None]
